FAERS Safety Report 5609390-5 (Version None)
Quarter: 2008Q1

REPORT INFORMATION
  Report Type: 
  Country: None (occurrence: None)
  Receive Date: 20080131
  Receipt Date: 20080130
  Transmission Date: 20080703
  Serious: Yes (Other)
  Sender: FDA-Public Use
  Company Number: A0706241A

PATIENT
  Age: 24 Year
  Sex: Female
  Weight: 78.2 kg

DRUGS (2)
  1. ALLI [Suspect]
     Indication: WEIGHT LOSS DIET
     Route: 048
     Dates: start: 20080118, end: 20080129
  2. ORAL CONTRACEPTIVE [Concomitant]
     Dates: start: 20080127

REACTIONS (9)
  - ANAL HAEMORRHAGE [None]
  - DEFAECATION URGENCY [None]
  - FATIGUE [None]
  - FEAR [None]
  - FREQUENT BOWEL MOVEMENTS [None]
  - INSOMNIA [None]
  - RECTAL DISCHARGE [None]
  - RECTAL HAEMORRHAGE [None]
  - RECTAL TENESMUS [None]
